FAERS Safety Report 23734499 (Version 7)
Quarter: 2024Q2

REPORT INFORMATION
  Report Type: Spontaneous
  Country: IT (occurrence: IT)
  Receive Date: 20240412
  Receipt Date: 20240531
  Transmission Date: 20240716
  Serious: Yes (Hospitalization, Other)
  Sender: FDA-Public Use
  Company Number: IT-MLMSERVICE-20240402-PI009095-00040-1

PATIENT
  Age: 71 Year
  Sex: Female

DRUGS (1)
  1. ALENDRONATE SODIUM [Suspect]
     Active Substance: ALENDRONATE SODIUM
     Indication: Osteoporosis
     Dosage: 70 MILLIGRAM, QW,  FOR LAST 5 YEARS
     Route: 048
     Dates: start: 2019

REACTIONS (1)
  - Lumbar vertebral fracture [Recovering/Resolving]
